APPROVED DRUG PRODUCT: ABIRATERONE ACETATE
Active Ingredient: ABIRATERONE ACETATE
Strength: 500MG
Dosage Form/Route: TABLET;ORAL
Application: A209227 | Product #002 | TE Code: AB
Applicant: GLENMARK SPECIALTY SA
Approved: May 19, 2022 | RLD: No | RS: No | Type: RX